FAERS Safety Report 23607062 (Version 1)
Quarter: 2024Q1

REPORT INFORMATION
  Report Type: Spontaneous
  Country: GR (occurrence: None)
  Receive Date: 20240307
  Receipt Date: 20240307
  Transmission Date: 20240409
  Serious: Yes (Hospitalization)
  Sender: FDA-Public Use
  Company Number: 2024A056354

PATIENT
  Age: 91 Year
  Sex: Male
  Weight: 80 kg

DRUGS (6)
  1. OMEPRAZOLE [Suspect]
     Active Substance: OMEPRAZOLE
  2. FUROSEMIDE [Concomitant]
     Active Substance: FUROSEMIDE
  3. AMIODARONE [Concomitant]
     Active Substance: AMIODARONE
  4. DUTASTERIDE [Concomitant]
     Active Substance: DUTASTERIDE
  5. FERROUS GLUCONATE [Concomitant]
     Active Substance: FERROUS GLUCONATE
  6. RIVAROXABAN [Concomitant]
     Active Substance: RIVAROXABAN

REACTIONS (8)
  - Femoral neck fracture [Unknown]
  - Fall [Unknown]
  - Macroglossia [Unknown]
  - Fatigue [Unknown]
  - Asthenia [Unknown]
  - Cognitive disorder [Unknown]
  - Dry skin [Unknown]
  - Swelling face [Unknown]
